FAERS Safety Report 9625040 (Version 4)
Quarter: 2014Q2

REPORT INFORMATION
  Report Type: Report from Study
  Country: US (occurrence: US)
  Receive Date: 20131016
  Receipt Date: 20140527
  Transmission Date: 20141212
  Serious: Yes (Hospitalization)
  Sender: FDA-Public Use
  Company Number: US-BRISTOL-MYERS SQUIBB COMPANY-19464338

PATIENT
  Age: 66 Year
  Sex: Male
  Weight: 127.9 kg

DRUGS (11)
  1. IPILIMUMAB [Suspect]
     Indication: MALIGNANT MELANOMA
     Dosage: 3MG/KG
     Route: 042
     Dates: start: 20130816
  2. ASPIRIN [Concomitant]
     Dates: start: 20130802
  3. TAMSULOSIN [Concomitant]
     Dates: start: 20130802
  4. VYTORIN [Concomitant]
     Dates: start: 20130802
  5. MULTIVITAMIN [Concomitant]
     Dates: start: 20130802
  6. VITAMIN B1 [Concomitant]
     Dates: start: 20130802
  7. KEFLEX [Concomitant]
  8. ROCEPHIN [Concomitant]
  9. VANCOMYCIN [Concomitant]
  10. KEFLEX [Concomitant]
  11. ZOSYN [Concomitant]

REACTIONS (1)
  - Cellulitis [Recovered/Resolved]
